FAERS Safety Report 25208820 (Version 1)
Quarter: 2025Q2

REPORT INFORMATION
  Report Type: Report from Study
  Country: US (occurrence: US)
  Receive Date: 20250417
  Receipt Date: 20250417
  Transmission Date: 20250717
  Serious: Yes (Hospitalization, Other)
  Sender: ABBVIE
  Company Number: US-ABBVIE-6236813

PATIENT
  Age: 77 Year
  Sex: Male

DRUGS (1)
  1. HUMIRA [Suspect]
     Active Substance: ADALIMUMAB
     Indication: Product used for unknown indication
     Route: 058
     Dates: start: 2023

REACTIONS (2)
  - Coma [Unknown]
  - Hospitalisation [Recovered/Resolved]

NARRATIVE: CASE EVENT DATE: 20241201
